FAERS Safety Report 8844790 (Version 1)
Quarter: 2012Q4

REPORT INFORMATION
  Report Type: 
  Country: GB (occurrence: GB)
  Receive Date: 20121017
  Receipt Date: 20121017
  Transmission Date: 20130627
  Serious: Yes (Other)
  Sender: FDA-Public Use
  Company Number: GB-BAYER-2012-104002

PATIENT
  Age: 42 Year
  Sex: Female

DRUGS (2)
  1. MIRENA [Suspect]
     Indication: CONTRACEPTION
     Dosage: 20 mcg/24hr, CONT
     Route: 015
     Dates: start: 20090605, end: 201104
  2. MICRONOR [Concomitant]
     Dosage: UNK

REACTIONS (3)
  - Menorrhagia [Not Recovered/Not Resolved]
  - Vaginal haemorrhage [Not Recovered/Not Resolved]
  - Uterine leiomyoma [None]
